FAERS Safety Report 11916837 (Version 1)
Quarter: 2016Q1

REPORT INFORMATION
  Report Type: Spontaneous
  Country: US (occurrence: US)
  Receive Date: 20160114
  Receipt Date: 20160114
  Transmission Date: 20160526
  Serious: No
  Sender: FDA-Public Use
  Company Number: US-PFIZER INC-2015454379

PATIENT
  Age: 84 Year
  Sex: Male

DRUGS (1)
  1. INSPRA [Suspect]
     Active Substance: EPLERENONE
     Indication: HYPERTENSIVE HEART DISEASE
     Dosage: 50 MG, 1X/DAY
     Route: 048

REACTIONS (2)
  - Gynaecomastia [Unknown]
  - Rash pruritic [Unknown]
